FAERS Safety Report 9053502 (Version 1)
Quarter: 2013Q1

REPORT INFORMATION
  Report Type: Spontaneous
  Country: US (occurrence: US)
  Receive Date: 20130208
  Receipt Date: 20130208
  Transmission Date: 20140127
  Serious: Yes (Death)
  Sender: FDA-Public Use
  Company Number: PHEH2013US002973

PATIENT
  Age: 14 None
  Sex: Female

DRUGS (15)
  1. GLEEVEC [Suspect]
     Dosage: 100 MG, 2 TABLETS DAILY
     Route: 048
  2. PANTOPRAZOLE [Concomitant]
     Dosage: 40 MG
  3. SERTRALINE [Concomitant]
     Dosage: 100 MG, UNK
  4. FLUCONAZOLE [Concomitant]
     Dosage: 100 MG
  5. PREDNISONE [Concomitant]
     Dosage: 1 MG, UNK
  6. PENTAMIDINE [Concomitant]
     Dosage: 300 MG
  7. NAPROXEN [Concomitant]
     Dosage: 250 MG
  8. AZITHROMYCIN [Concomitant]
     Dosage: 250 MG
  9. PRAVASTATIN [Concomitant]
     Dosage: 20 MG
  10. ALBUTEROL [Concomitant]
     Dosage: 0.083 %
  11. ZOFRAN [Concomitant]
     Dosage: 4 MG
  12. ADVAIR DISKUS [Concomitant]
     Dosage: 100/50
  13. ELECTROLYTE SOLUTIONS [Concomitant]
     Dosage: UNK UKN, UNK
  14. TACROLIMUS [Concomitant]
     Dosage: 1 MG, UNK
  15. CALCIUM CARBONATE [Concomitant]
     Dosage: 260 MG, UNK

REACTIONS (1)
  - Death [Fatal]
